FAERS Safety Report 7510183-2 (Version None)
Quarter: 2011Q2

REPORT INFORMATION
  Report Type: 
  Country: None (occurrence: None)
  Receive Date: 20110527
  Receipt Date: 20110520
  Transmission Date: 20111010
  Serious: Yes (Other)
  Sender: FDA-Public Use
  Company Number: US-BAYER-2011-016941

PATIENT
  Age: 42 Year
  Sex: Female

DRUGS (5)
  1. ALLEGRA [Concomitant]
  2. ADVAIR DISKUS 100/50 [Concomitant]
  3. PROAIR HFA [Concomitant]
  4. AVELOX [Suspect]
     Indication: SINUSITIS
     Dosage: DAILY DOSE 400 MG
     Route: 048
     Dates: start: 20110218, end: 20110219
  5. NEXIUM [Concomitant]

REACTIONS (5)
  - PARAESTHESIA [None]
  - INSOMNIA [None]
  - ABASIA [None]
  - NAUSEA [None]
  - OEDEMA PERIPHERAL [None]
